FAERS Safety Report 7901368-1 (Version None)
Quarter: 2011Q4

REPORT INFORMATION
  Report Type: 
  Country: None (occurrence: None)
  Receive Date: 20111108
  Receipt Date: 20111104
  Transmission Date: 20120403
  Serious: Yes (Other)
  Sender: FDA-Public Use
  Company Number: US-PFIZER INC-2011267201

PATIENT
  Sex: Male

DRUGS (2)
  1. IBUPROFEN [Suspect]
     Dosage: UNK
  2. ENBREL [Suspect]
     Indication: RHEUMATOID ARTHRITIS
     Dosage: 50 MG, QWK
     Dates: start: 20070731

REACTIONS (7)
  - CELLULITIS [None]
  - CARDIAC FAILURE CONGESTIVE [None]
  - RENAL DISORDER [None]
  - RHEUMATOID ARTHRITIS [None]
  - HYPERTENSION [None]
  - INFECTED BITES [None]
  - HUMAN CHORIONIC GONADOTROPIN INCREASED [None]
